FAERS Safety Report 7266355-8 (Version None)
Quarter: 2011Q1

REPORT INFORMATION
  Report Type: 
  Country: None (occurrence: None)
  Receive Date: 20110131
  Receipt Date: 20110126
  Transmission Date: 20110831
  Serious: Yes (Other)
  Sender: FDA-Public Use
  Company Number: US-PFIZER INC-2011019625

PATIENT

DRUGS (1)
  1. VFEND [Suspect]
     Dosage: UNK
     Route: 048

REACTIONS (3)
  - BONE DISORDER [None]
  - PERIOSTITIS [None]
  - FLUOROSIS [None]
